FAERS Safety Report 8152391-6 (Version None)
Quarter: 2012Q1

REPORT INFORMATION
  Report Type: 
  Country: None (occurrence: None)
  Receive Date: 20120221
  Receipt Date: 20120214
  Transmission Date: 20120608
  Serious: Yes (Hospitalization, Other)
  Sender: FDA-Public Use
  Company Number: US-BAYER-2012-016374

PATIENT
  Age: 19 Year
  Sex: Female

DRUGS (3)
  1. YAZ [Suspect]
  2. BACTRIM DS [Concomitant]
     Indication: URINARY TRACT INFECTION
     Dosage: 800 MG, BID
     Route: 048
  3. YASMIN [Suspect]

REACTIONS (6)
  - DYSPNOEA [None]
  - ARTHRALGIA [None]
  - CHOLELITHIASIS [None]
  - CHEST PAIN [None]
  - MUSCULOSKELETAL DISCOMFORT [None]
  - PULMONARY EMBOLISM [None]
